FAERS Safety Report 10634293 (Version 1)
Quarter: 2014Q4

REPORT INFORMATION
  Report Type: Spontaneous
  Country: US (occurrence: None)
  Receive Date: 20141203
  Receipt Date: 20141203
  Transmission Date: 20150529
  Serious: Yes (Hospitalization)
  Sender: FDA-Public Use
  Company Number: None

PATIENT
  Age: 71 Year
  Sex: Female
  Weight: 72.5 kg

DRUGS (3)
  1. METFORMIN HYDROCHLORIDE. [Suspect]
     Active Substance: METFORMIN HYDROCHLORIDE
  2. CARBOPLATIN. [Suspect]
     Active Substance: CARBOPLATIN
  3. TAXOL [Suspect]
     Active Substance: PACLITAXEL

REACTIONS (9)
  - Hypotension [None]
  - Tachycardia [None]
  - Nausea [None]
  - Vomiting [None]
  - Neutropenia [None]
  - Septic shock [None]
  - Confusional state [None]
  - Diarrhoea [None]
  - Organ failure [None]

NARRATIVE: CASE EVENT DATE: 20141125
